FAERS Safety Report 13166483 (Version 1)
Quarter: 2017Q1

REPORT INFORMATION
  Report Type: Spontaneous
  Country: US (occurrence: US)
  Receive Date: 20170126
  Receipt Date: 20170126
  Transmission Date: 20170428
  Serious: Yes (Other)
  Sender: FDA-Public Use
  Company Number: None

PATIENT
  Age: 33 Year
  Sex: Female
  Weight: 95.85 kg

DRUGS (3)
  1. SAXENDA [Suspect]
     Active Substance: LIRAGLUTIDE
     Indication: OBESITY
     Dosage: ?          QUANTITY:1 INJECTION(S);OTHER ROUTE:INJECTED INTO STOMACH OR THIGH?
     Dates: end: 20161217
  2. ZYRTEC [Concomitant]
     Active Substance: CETIRIZINE HYDROCHLORIDE
  3. OCCELLA [Concomitant]

REACTIONS (2)
  - Cholelithiasis [None]
  - Pain [None]

NARRATIVE: CASE EVENT DATE: 20161204
